FAERS Safety Report 7311174-7 (Version None)
Quarter: 2011Q1

REPORT INFORMATION
  Report Type: 
  Country: None (occurrence: None)
  Receive Date: 20110224
  Receipt Date: 20110217
  Transmission Date: 20110831
  Serious: Yes (Other)
  Sender: FDA-Public Use
  Company Number: GR-ROCHE-761162

PATIENT
  Age: 84 Year
  Sex: Female
  Weight: 53 kg

DRUGS (1)
  1. TAMIFLU [Suspect]
     Indication: INFLUENZA
     Route: 048
     Dates: start: 20110211, end: 20110215

REACTIONS (2)
  - EAR PAIN [None]
  - HYPOACUSIS [None]
